FAERS Safety Report 4442206-1 (Version None)
Quarter: 2004Q3

REPORT INFORMATION
  Report Type: 
  Country: None (occurrence: None)
  Receive Date: 20040903
  Receipt Date: 20040818
  Transmission Date: 20050211
  Serious: Yes (Other)
  Sender: FDA-Public Use
  Company Number: 2004UW15807

PATIENT
  Age: 71 Year
  Sex: Female
  Weight: 51.7101 kg

DRUGS (7)
  1. CRESTOR [Suspect]
     Indication: BLOOD CHOLESTEROL INCREASED
     Dosage: 10 MG PO
     Route: 048
     Dates: start: 20030901
  2. CRESTOR [Suspect]
     Indication: HYPERCHOLESTEROLAEMIA
     Dosage: 10 MG PO
     Route: 048
     Dates: start: 20030901
  3. HYZAAR [Concomitant]
  4. NORVASC [Concomitant]
  5. TOPROL-XL [Concomitant]
  6. VITAMIN B INJECTIONS [Concomitant]
  7. DEXTRA [Concomitant]

REACTIONS (4)
  - DIARRHOEA [None]
  - EATING DISORDER [None]
  - FLATULENCE [None]
  - NAUSEA [None]
